FAERS Safety Report 9410712 (Version 2)
Quarter: 2013Q3

REPORT INFORMATION
  Report Type: Report from Study
  Country: US (occurrence: US)
  Receive Date: 20130719
  Receipt Date: 20130827
  Transmission Date: 20140515
  Serious: Yes (Hospitalization, Other)
  Sender: FDA-Public Use
  Company Number: US-ABBOTT-13P-163-1119345-00

PATIENT
  Age: 54 Year
  Sex: Female
  Weight: 76.27 kg

DRUGS (11)
  1. HUMIRA [Suspect]
     Indication: RHEUMATOID ARTHRITIS
     Dates: start: 2007
  2. METHOTREXATE [Concomitant]
     Indication: RHEUMATOID ARTHRITIS
     Dosage: 6 PILLS ONCE WEEKLY
  3. NORVASC [Concomitant]
     Indication: HYPERTENSION
  4. LEXAPRO [Concomitant]
     Indication: DEPRESSION
  5. FOLIC ACID [Concomitant]
     Indication: RHEUMATOID ARTHRITIS
  6. ESTROVEN OVER-THE-COUNTER [Concomitant]
     Indication: MENOPAUSE
     Dosage: DAILY
  7. ASPIRIN [Concomitant]
     Indication: CARDIAC DISORDER
  8. VITAMIN B COMPLEX [Concomitant]
     Indication: PRODUCT USED FOR UNKNOWN INDICATION
     Dosage: DAILY
  9. VITAMIN C [Concomitant]
     Indication: PRODUCT USED FOR UNKNOWN INDICATION
     Dosage: DAILY
  10. VITAMIN E [Concomitant]
     Indication: PRODUCT USED FOR UNKNOWN INDICATION
     Dosage: DAILY
  11. CITRICAL [Concomitant]
     Dosage: DAILY

REACTIONS (24)
  - Chondropathy [Unknown]
  - Haematemesis [Unknown]
  - Appendicitis perforated [Unknown]
  - Abdominal pain [Unknown]
  - Nausea [Unknown]
  - Fatigue [Unknown]
  - Haemorrhagic diathesis [Unknown]
  - Increased tendency to bruise [Unknown]
  - Mobility decreased [Unknown]
  - Hypoaesthesia [Unknown]
  - Muscular weakness [Unknown]
  - Poor peripheral circulation [Unknown]
  - Dizziness postural [Unknown]
  - Dizziness postural [Unknown]
  - Dizziness [Unknown]
  - Hypersensitivity [Unknown]
  - Blood triglycerides increased [Unknown]
  - Arthropod bite [Unknown]
  - Skin haemorrhage [Unknown]
  - Hypoaesthesia [Unknown]
  - Paraesthesia [Unknown]
  - Middle insomnia [Unknown]
  - Nasal congestion [Unknown]
  - Headache [Unknown]
